FAERS Safety Report 5764130-4 (Version None)
Quarter: 2008Q2

REPORT INFORMATION
  Report Type: 
  Country: None (occurrence: None)
  Receive Date: 20080604
  Receipt Date: 20080520
  Transmission Date: 20081010
  Serious: Yes (Death)
  Sender: FDA-Public Use
  Company Number: 2008AL005580

PATIENT
  Age: 89 Year
  Sex: Female
  Weight: 57.1532 kg

DRUGS (7)
  1. DIGOXIN [Suspect]
     Indication: CARDIOMYOPATHY
     Dosage: 0.125 MG PO
     Route: 048
  2. SEROQUEL [Concomitant]
  3. CYMBALTA [Concomitant]
  4. DIOVAN [Concomitant]
  5. DETROL [Concomitant]
  6. METOPROLOL [Concomitant]
  7. VYTORIN [Concomitant]

REACTIONS (2)
  - MALAISE [None]
  - UNEVALUABLE EVENT [None]
